FAERS Safety Report 7121039-1 (Version None)
Quarter: 2010Q4

REPORT INFORMATION
  Report Type: 
  Country: None (occurrence: None)
  Receive Date: 20101124
  Receipt Date: 20101116
  Transmission Date: 20110411
  Serious: Yes (Hospitalization)
  Sender: FDA-Public Use
  Company Number: US-JNJFOC-20101105679

PATIENT
  Sex: Female

DRUGS (9)
  1. REMICADE [Suspect]
     Indication: COLITIS ULCERATIVE
     Route: 042
  2. MERCAPTOPURINE [Concomitant]
  3. SYNTHROID [Concomitant]
     Route: 065
  4. NADOLOL [Concomitant]
     Route: 065
  5. PRILOSEC [Concomitant]
  6. FOLIC ACID [Concomitant]
     Route: 065
  7. MAXALT [Concomitant]
     Route: 065
  8. CALCIUM [Concomitant]
     Route: 065
  9. MULTI-VITAMINS [Concomitant]
     Route: 065

REACTIONS (1)
  - MENINGITIS LISTERIA [None]
